FAERS Safety Report 15385921 (Version 2)
Quarter: 2019Q1

REPORT INFORMATION
  Report Type: Report from Study
  Country: AU (occurrence: AU)
  Receive Date: 20180914
  Receipt Date: 20190325
  Transmission Date: 20190417
  Serious: Yes (Other)
  Sender: FDA-Public Use
  Company Number: AU-GLAXOSMITHKLINE-AU2018GSK166056

PATIENT
  Sex: Male

DRUGS (2)
  1. DOXYCYCLINE. [Concomitant]
     Active Substance: DOXYCYCLINE
     Indication: PRODUCT USED FOR UNKNOWN INDICATION
  2. TAFENOQUINE [Suspect]
     Active Substance: TAFENOQUINE
     Indication: PROPHYLAXIS

REACTIONS (16)
  - Initial insomnia [Unknown]
  - Aggression [Unknown]
  - Anger [Unknown]
  - Panic reaction [Unknown]
  - Poor quality sleep [Unknown]
  - Physical assault [Unknown]
  - Seizure [Unknown]
  - Paranoia [Unknown]
  - Emotional distress [Unknown]
  - Alcohol abuse [Unknown]
  - Abnormal behaviour [Unknown]
  - Mood swings [Unknown]
  - Partner stress [Unknown]
  - Depression [Unknown]
  - Nightmare [Unknown]
  - Anxiety [Not Recovered/Not Resolved]
